FAERS Safety Report 12629555 (Version 1)
Quarter: 2016Q3

REPORT INFORMATION
  Report Type: Spontaneous
  Country: AU (occurrence: AU)
  Receive Date: 20160808
  Receipt Date: 20160808
  Transmission Date: 20161109
  Serious: Yes (Other)
  Sender: FDA-Public Use
  Company Number: AU-PFIZER INC-2016376043

PATIENT
  Age: 43 Year
  Sex: Female

DRUGS (9)
  1. LIPITOR [Suspect]
     Active Substance: ATORVASTATIN CALCIUM
     Route: 065
  2. APRINOX [Concomitant]
     Active Substance: BENDROFLUMETHIAZIDE
  3. LASIX [Concomitant]
     Active Substance: FUROSEMIDE
  4. PROBENECID. [Suspect]
     Active Substance: PROBENECID
     Route: 065
  5. CYCLOSPORIN-A [Concomitant]
     Active Substance: CYCLOSPORINE
  6. COLCHICINE. [Suspect]
     Active Substance: COLCHICINE
     Route: 065
  7. DILTIAZEM. [Concomitant]
     Active Substance: DILTIAZEM
  8. ATENOLOL. [Suspect]
     Active Substance: ATENOLOL
     Route: 065
  9. CALCITRIOL. [Concomitant]
     Active Substance: CALCITRIOL

REACTIONS (1)
  - Rhabdomyolysis [Unknown]
